FAERS Safety Report 7210939-X (Version None)
Quarter: 2011Q1

REPORT INFORMATION
  Report Type: 
  Country: None (occurrence: None)
  Receive Date: 20110105
  Receipt Date: 20101216
  Transmission Date: 20110831
  Serious: Yes (Death, Hospitalization)
  Sender: FDA-Public Use
  Company Number: A0805497A

PATIENT
  Age: 64 Year
  Sex: Male

DRUGS (10)
  1. PRAVACHOL [Concomitant]
  2. ASPIRIN [Concomitant]
  3. AZMACORT [Concomitant]
  4. LASIX [Concomitant]
  5. GLUCOPHAGE [Concomitant]
  6. PROVENTIL [Concomitant]
  7. PREDNISONE [Concomitant]
  8. AVANDIA [Suspect]
     Indication: DIABETES MELLITUS
     Dosage: 4MG PER DAY
     Route: 048
     Dates: start: 20010117, end: 20020321
  9. GLUCOTROL XL [Concomitant]
  10. DILANTIN [Concomitant]

REACTIONS (3)
  - CARDIAC FAILURE CONGESTIVE [None]
  - CARDIO-RESPIRATORY ARREST [None]
  - MYOCARDIAL INFARCTION [None]
